FAERS Safety Report 20368784 (Version 6)
Quarter: 2022Q3

REPORT INFORMATION
  Report Type: Report from Study
  Country: US (occurrence: US)
  Receive Date: 20220124
  Receipt Date: 20220729
  Transmission Date: 20221026
  Serious: Yes (Hospitalization)
  Sender: FDA-Public Use
  Company Number: US-NOVARTISPH-NVSC2022US014157

PATIENT
  Sex: Female
  Weight: 52.154 kg

DRUGS (2)
  1. TREPROSTINIL [Suspect]
     Active Substance: TREPROSTINIL
     Indication: Pulmonary arterial hypertension
     Dosage: UNK UNK, CONT, (10 NG/KG/MIN)
     Route: 042
     Dates: start: 20220114
  2. TREPROSTINIL [Suspect]
     Active Substance: TREPROSTINIL
     Dosage: UNK UNK, CONT, (10 NG/KG/MIN)
     Route: 065
     Dates: start: 20220114

REACTIONS (6)
  - Staphylococcal infection [Unknown]
  - Night sweats [Unknown]
  - Suture related complication [Unknown]
  - Fatigue [Unknown]
  - Diarrhoea [Unknown]
  - Infusion site infection [Recovered/Resolved]
